FAERS Safety Report 12108241 (Version 2)
Quarter: 2017Q1

REPORT INFORMATION
  Report Type: Spontaneous
  Country: US (occurrence: US)
  Receive Date: 20160224
  Receipt Date: 20170224
  Transmission Date: 20170428
  Serious: No
  Sender: FDA-Public Use
  Company Number: US-ALVOGEN-2015-ALVOGEN-020610

PATIENT
  Sex: Male

DRUGS (7)
  1. LASIX [Concomitant]
     Active Substance: FUROSEMIDE
     Indication: CARDIAC DISORDER
  2. METFORMIN [Concomitant]
     Active Substance: METFORMIN HYDROCHLORIDE
     Indication: DIABETES MELLITUS
  3. MAGNESIUM [Concomitant]
     Active Substance: MAGNESIUM
     Indication: SUPPLEMENTATION THERAPY
  4. POTASSIUM CHLORIDE. [Concomitant]
     Active Substance: POTASSIUM CHLORIDE
     Indication: SUPPLEMENTATION THERAPY
  5. OXYCODONE [Suspect]
     Active Substance: OXYCODONE
     Indication: PAIN
     Route: 048
  6. LISINOPRIL/HYDROCHLOROTHIAZIDE [Concomitant]
     Indication: BLOOD PRESSURE ABNORMAL
     Dosage: 20MG/12.5MG
  7. BYSTOLIC [Concomitant]
     Active Substance: NEBIVOLOL HYDROCHLORIDE
     Indication: BLOOD PRESSURE ABNORMAL

REACTIONS (1)
  - Constipation [Recovering/Resolving]
